FAERS Safety Report 6396224-7 (Version None)
Quarter: 2009Q4

REPORT INFORMATION
  Report Type: 
  Country: None (occurrence: None)
  Receive Date: 20091012
  Receipt Date: 20080429
  Transmission Date: 20100525
  Serious: Yes (Death)
  Sender: FDA-Public Use
  Company Number: US-ASTRAZENECA-2007UW05961

PATIENT
  Age: 16615 Day
  Sex: Female

DRUGS (4)
  1. SEROQUEL [Suspect]
     Indication: DEPRESSION
     Dosage: 50 TO 300 MG
     Route: 048
     Dates: start: 19970101, end: 20060101
  2. METOCLOPRAMIDE HYDROCHLORIDE [Concomitant]
  3. ONDANSETRON HYDROCHLORIDE [Concomitant]
  4. OXYCONTIN [Concomitant]
     Dosage: 20-40 MG
     Dates: start: 20000101

REACTIONS (2)
  - DEATH [None]
  - TYPE 2 DIABETES MELLITUS [None]
